FAERS Safety Report 6291241-X (Version None)
Quarter: 2009Q3

REPORT INFORMATION
  Report Type: 
  Country: None (occurrence: None)
  Receive Date: 20090729
  Receipt Date: 20090729
  Transmission Date: 20100115
  Serious: Yes (Life-Threatening, Hospitalization)
  Sender: FDA-Public Use
  Company Number: None

PATIENT
  Age: 71 Year
  Sex: Female
  Weight: 81.6475 kg

DRUGS (1)
  1. SKELAXIN [Suspect]
     Indication: MUSCLE SPASMS
     Dosage: ONE TABLET TWO DAILY PO
     Route: 048
     Dates: start: 20090625, end: 20090626

REACTIONS (2)
  - DIPLOPIA [None]
  - IMPAIRED DRIVING ABILITY [None]
